FAERS Safety Report 6573437-2 (Version None)
Quarter: 2010Q1

REPORT INFORMATION
  Report Type: 
  Country: None (occurrence: None)
  Receive Date: 20100204
  Receipt Date: 20100204
  Transmission Date: 20100710
  Serious: Yes (Death, Life-Threatening, Hospitalization)
  Sender: FDA-Public Use
  Company Number: None

PATIENT
  Age: 70 Year
  Sex: Female

DRUGS (1)
  1. NITROFURANTOIN 100MG UNKNOWN [Suspect]
     Indication: CYSTITIS
     Dosage: 100MG DAILY PO
     Route: 048

REACTIONS (6)
  - CARDIAC ARREST [None]
  - DRUG TOXICITY [None]
  - EMPHYSEMA [None]
  - LUNG CONSOLIDATION [None]
  - PNEUMONIA [None]
  - PULMONARY EMBOLISM [None]
